FAERS Safety Report 4966309-8 (Version None)
Quarter: 2006Q2

REPORT INFORMATION
  Report Type: 
  Country: None (occurrence: None)
  Receive Date: 20060407
  Receipt Date: 20030605
  Transmission Date: 20061013
  Serious: Yes (Hospitalization, Disabling, Other)
  Sender: FDA-Public Use
  Company Number: US-MERCK-0306USA00822

PATIENT
  Age: 55 Year
  Sex: Female
  Weight: 92 kg

DRUGS (5)
  1. VIOXX [Suspect]
     Indication: OSTEOARTHRITIS
     Route: 048
     Dates: start: 20000301
  2. VIOXX [Suspect]
     Route: 048
     Dates: start: 20000803
  3. VIOXX [Suspect]
     Route: 048
     Dates: end: 20010803
  4. LESCOL [Concomitant]
     Indication: HYPERLIPIDAEMIA
     Route: 065
  5. DIAZIDE [Concomitant]
     Route: 065

REACTIONS (17)
  - ABDOMINAL PAIN [None]
  - ARTHROPATHY [None]
  - BACK DISORDER [None]
  - BACK PAIN [None]
  - COUGH [None]
  - DEPRESSION [None]
  - FIBROMYALGIA [None]
  - HEADACHE [None]
  - HYPERLIPIDAEMIA [None]
  - HYPERTENSION [None]
  - INTERVERTEBRAL DISC PROTRUSION [None]
  - MUSCULOSKELETAL PAIN [None]
  - NAUSEA [None]
  - OSTEOARTHRITIS [None]
  - SCIATICA [None]
  - SWELLING [None]
  - VISION BLURRED [None]
